FAERS Safety Report 4598918-2 (Version None)
Quarter: 2005Q1

REPORT INFORMATION
  Report Type: 
  Country: None (occurrence: None)
  Receive Date: 20050304
  Receipt Date: 20050126
  Transmission Date: 20050727
  Serious: Yes (Life-Threatening, Hospitalization)
  Sender: FDA-Public Use
  Company Number: FR-ABBOTT-05P-056-0288325-00

PATIENT
  Sex: Male
  Weight: 84 kg

DRUGS (5)
  1. SECALIP [Suspect]
     Indication: HYPERCHOLESTEROLAEMIA
     Route: 048
     Dates: end: 20041201
  2. SECALIP [Suspect]
  3. SECALIP [Suspect]
  4. CELECOXIB [Suspect]
     Indication: LIMB DISCOMFORT
     Dates: start: 20041204, end: 20041204
  5. CHRYSANTELLUM AMERICANUM [Concomitant]
     Indication: DRUG USE FOR UNKNOWN INDICATION
     Route: 065
     Dates: start: 20040615, end: 20041214

REACTIONS (9)
  - ASTHENIA [None]
  - DIARRHOEA [None]
  - HEADACHE [None]
  - LIVER DISORDER [None]
  - MYALGIA [None]
  - PYREXIA [None]
  - RENAL DISORDER [None]
  - SHOCK [None]
  - TOXIC EPIDERMAL NECROLYSIS [None]
